FAERS Safety Report 12997113 (Version 2)
Quarter: 2018Q4

REPORT INFORMATION
  Report Type: Spontaneous
  Country: US (occurrence: US)
  Receive Date: 20161205
  Receipt Date: 20181103
  Transmission Date: 20190204
  Serious: Yes (Other)
  Sender: FDA-Public Use
  Company Number: US-ACCORD-046198

PATIENT
  Age: 26 Year
  Sex: Female

DRUGS (2)
  1. CISPLATIN. [Suspect]
     Active Substance: CISPLATIN
     Indication: LYMPHADENOPATHY MEDIASTINAL
     Dosage: 5 OF 6 PLANNED CYCLES
  2. ETOPOSIDE. [Suspect]
     Active Substance: ETOPOSIDE
     Indication: LYMPHADENOPATHY MEDIASTINAL
     Dosage: 5 OF 6 PLANNED CYCLES

REACTIONS (4)
  - Gastrointestinal disorder [Unknown]
  - Off label use [Unknown]
  - Pancytopenia [Unknown]
  - Fatigue [Unknown]
